FAERS Safety Report 5778569-4 (Version None)
Quarter: 2008Q2

REPORT INFORMATION
  Report Type: 
  Country: None (occurrence: None)
  Receive Date: 20080618
  Receipt Date: 20080618
  Transmission Date: 20081010
  Serious: Yes (Life-Threatening)
  Sender: FDA-Public Use
  Company Number: None

PATIENT
  Age: 54 Year
  Sex: Female
  Weight: 62.1428 kg

DRUGS (2)
  1. CRESTOR [Suspect]
     Indication: BLOOD TRIGLYCERIDES INCREASED
     Dosage: 1 QD PO
     Route: 048
     Dates: start: 20070401, end: 20080524
  2. JANUMET [Suspect]
     Indication: BLOOD GLUCOSE INCREASED
     Dosage: 1 BID PO
     Route: 048
     Dates: start: 20080410, end: 20080525

REACTIONS (3)
  - FATIGUE [None]
  - HEPATITIS [None]
  - IMPAIRED WORK ABILITY [None]
